FAERS Safety Report 12194858 (Version 1)
Quarter: 2016Q1

REPORT INFORMATION
  Report Type: Spontaneous
  Country: US (occurrence: None)
  Receive Date: 20160318
  Receipt Date: 20160318
  Transmission Date: 20160526
  Serious: Yes (Other)
  Sender: FDA-Public Use
  Company Number: None

PATIENT
  Age: 59 Year
  Sex: Female

DRUGS (1)
  1. IBRANCE [Suspect]
     Active Substance: PALBOCICLIB
     Indication: NEOPLASM MALIGNANT
     Dosage: 125MG DAILY FOR 21 DAYS EVERY ORAL
     Route: 048
     Dates: start: 20151215

REACTIONS (3)
  - Blood pressure increased [None]
  - Pruritus [None]
  - Skin warm [None]

NARRATIVE: CASE EVENT DATE: 20160315
